FAERS Safety Report 7892733-X (Version None)
Quarter: 2011Q4

REPORT INFORMATION
  Report Type: 
  Country: None (occurrence: None)
  Receive Date: 20111104
  Receipt Date: 20111026
  Transmission Date: 20120403
  Serious: Yes (Other)
  Sender: FDA-Public Use
  Company Number: PHHY2011CA95772

PATIENT
  Sex: Male

DRUGS (2)
  1. PREVACID [Concomitant]
  2. EXJADE [Suspect]
     Indication: CONGENITAL APLASTIC ANAEMIA
     Dosage: 250 MG, QD
     Route: 048

REACTIONS (4)
  - VISUAL ACUITY REDUCED [None]
  - HAEMOGLOBIN DECREASED [None]
  - GAZE PALSY [None]
  - FATIGUE [None]
